FAERS Safety Report 7958130-3 (Version None)
Quarter: 2011Q4

REPORT INFORMATION
  Report Type: 
  Country: None (occurrence: None)
  Receive Date: 20111201
  Receipt Date: 20111122
  Transmission Date: 20120403
  Serious: Yes (Hospitalization)
  Sender: FDA-Public Use
  Company Number: AUR-APL-2011-05917

PATIENT
  Age: 76 Year
  Sex: Male

DRUGS (15)
  1. RANITIDINE HYDROCHLORIDE [Concomitant]
  2. ISOSORBIDE MONONITRATE [Concomitant]
  3. FUROSEMIDE [Concomitant]
  4. AMOXICILLIN [Suspect]
     Indication: PRODUCT USED FOR UNKNOWN INDICATION
     Dosage: 1500 MG [500 MG, 3 IN 1 D),ORAL
     Route: 048
     Dates: start: 20111011, end: 20111018
  5. LACTULOSE [Concomitant]
  6. MIRTAZAPINE [Concomitant]
  7. OMEPRAZOLE [Concomitant]
  8. RAMIPRIL [Concomitant]
  9. ACETAMINOPHEN [Concomitant]
  10. ATORVASTATIN [Concomitant]
  11. WARFARIN SODIUM [Concomitant]
  12. ASPIRIN [Concomitant]
  13. AMIODARONE HCL [Suspect]
     Indication: ATRIAL FIBRILLATION
     Dosage: 200 MG (200 MG, 1 IN 1 D), ORAL
     Route: 048
     Dates: start: 20110219, end: 20111108
  14. AMLODIPINE [Concomitant]
  15. BISOPROLOL FUMARATE [Concomitant]

REACTIONS (3)
  - HYPOTHYROIDISM [None]
  - SKIN DISCOLOURATION [None]
  - LIVER FUNCTION TEST ABNORMAL [None]
